FAERS Safety Report 5356752-X (Version None)
Quarter: 2007Q2

REPORT INFORMATION
  Report Type: 
  Country: None (occurrence: None)
  Receive Date: 20070614
  Receipt Date: 20060518
  Transmission Date: 20071010
  Serious: No
  Sender: FDA-Public Use
  Company Number: US-ASTRAZENECA-2006UW09722

PATIENT
  Age: 64 Year
  Sex: Male
  Weight: 95.3 kg

DRUGS (2)
  1. ATACAND [Suspect]
     Indication: HYPERTENSION
     Route: 048
     Dates: start: 20030601
  2. NEXIUM [Concomitant]
     Route: 048

REACTIONS (2)
  - ARTHRALGIA [None]
  - VARICOSE VEIN [None]
